FAERS Safety Report 12357847 (Version 1)
Quarter: 2016Q2

REPORT INFORMATION
  Report Type: Spontaneous
  Country: US (occurrence: US)
  Receive Date: 20160512
  Receipt Date: 20160512
  Transmission Date: 20160815
  Serious: No
  Sender: FDA-Public Use
  Company Number: US-ASPEN PHARMA TRADING LIMITED US-AS-2015-002129

PATIENT
  Sex: Female

DRUGS (3)
  1. VINBLASTINE [Concomitant]
     Active Substance: VINBLASTINE
     Indication: PRODUCT USED FOR UNKNOWN INDICATION
     Route: 042
  2. PROCARBAZINE [Concomitant]
     Active Substance: PROCARBAZINE
     Indication: PRODUCT USED FOR UNKNOWN INDICATION
     Route: 065
  3. LEUKERAN [Suspect]
     Active Substance: CHLORAMBUCIL
     Indication: LYMPHOMA
     Dosage: ONCE DAILY ON DAYS 1-14
     Route: 065

REACTIONS (2)
  - Incorrect product storage [Unknown]
  - Drug administration error [Unknown]
